FAERS Safety Report 7522299-5 (Version None)
Quarter: 2011Q2

REPORT INFORMATION
  Report Type: 
  Country: None (occurrence: None)
  Receive Date: 20110512
  Receipt Date: 20110504
  Transmission Date: 20111010
  Serious: Yes (Hospitalization, Other)
  Sender: FDA-Public Use
  Company Number: 2011028445

PATIENT
  Sex: Female
  Weight: 47.6277 kg

DRUGS (26)
  1. HIZENTRA [Suspect]
     Indication: HYPOGLOBULINAEMIA
     Dosage: (3 G 3X/WEEK, INFUSED 15 ML MWF; SLOW PUCH OVER 10 TO 15 MINUTES SUBCUTANEOUS), (SUBCUTANEOUS), (SUB
     Route: 058
     Dates: start: 20110310
  2. HIZENTRA [Suspect]
     Indication: HYPOGLOBULINAEMIA
     Dosage: (3 G 3X/WEEK, INFUSED 15 ML MWF; SLOW PUCH OVER 10 TO 15 MINUTES SUBCUTANEOUS), (SUBCUTANEOUS), (SUB
     Route: 058
     Dates: start: 20110401
  3. HIZENTRA [Suspect]
     Indication: HYPOGLOBULINAEMIA
     Dosage: (3 G 3X/WEEK, INFUSED 15 ML MWF; SLOW PUCH OVER 10 TO 15 MINUTES SUBCUTANEOUS), (SUBCUTANEOUS), (SUB
     Route: 058
     Dates: start: 20110401
  4. SIMETHICONE DROPS (DIMETICONE, ACTIVATED) [Concomitant]
  5. ATIVAN [Concomitant]
  6. CRANBERRY CAPSULE (VACCINIUM MACROCARPON) [Concomitant]
  7. HEP FLUSH KIT [Concomitant]
  8. MORPHINE SULFATE INJ [Concomitant]
  9. CEFTIN [Concomitant]
  10. PREDNISONE [Concomitant]
  11. MYSOLINE [Concomitant]
  12. VITAMIN D [Concomitant]
  13. CARNITINE (CARNITINE) [Concomitant]
  14. ZOSYN [Concomitant]
  15. ALBUTEROL [Concomitant]
  16. CENTRUM LIQUID (CENRUM /01522201/) [Concomitant]
  17. VIMPAT [Concomitant]
  18. KEPPRA [Concomitant]
  19. CLARITIN [Concomitant]
  20. VITAMIN K (VITAMIN K NOS) [Concomitant]
  21. CALCIUM CARBONATE [Concomitant]
  22. ACIDOPHILUS LACTOBACILLUS (LACTOBACILLUS ACIDOPHILUS) [Concomitant]
  23. HIZENTRA [Suspect]
  24. ACETAMINOPHEN [Concomitant]
  25. NORMAL SALINE FLUSH (SODIUM CHLORIDE) [Concomitant]
  26. OXYCODONE HCL (OXYCODONE) [Concomitant]

REACTIONS (8)
  - SEPSIS [None]
  - EAR INFECTION [None]
  - ASPIRATION [None]
  - EYE INFECTION [None]
  - RHINITIS [None]
  - PHARYNGITIS [None]
  - PSEUDOMONAS TEST POSITIVE [None]
  - PRODUCT CONTAMINATION MICROBIAL [None]
